FAERS Safety Report 10190927 (Version 1)
Quarter: 2014Q2

REPORT INFORMATION
  Report Type: Spontaneous
  Country: US (occurrence: None)
  Receive Date: 20140521
  Receipt Date: 20140521
  Transmission Date: 20141212
  Serious: Yes (Other)
  Sender: FDA-Public Use
  Company Number: None

PATIENT
  Sex: 0

DRUGS (1)
  1. NAPROXEN [Suspect]

REACTIONS (4)
  - Faeces discoloured [None]
  - Back pain [None]
  - Dizziness [None]
  - Balance disorder [None]
